FAERS Safety Report 5156999-1 (Version None)
Quarter: 2006Q4

REPORT INFORMATION
  Report Type: 
  Country: None (occurrence: None)
  Receive Date: 20061116
  Receipt Date: 20061101
  Transmission Date: 20070319
  Serious: Yes (Other)
  Sender: FDA-Public Use
  Company Number: 2006RL000398

PATIENT
  Age: 62 Year
  Sex: Female
  Weight: 99.7913 kg

DRUGS (15)
  1. OMACOR [Suspect]
     Indication: BLOOD TRIGLYCERIDES
     Dosage: 1 GM; QD; PO
     Route: 048
     Dates: start: 20050101
  2. ASPIRIN [Suspect]
     Dosage: SEE IMAGE
     Dates: end: 20060710
  3. ASPIRIN [Suspect]
     Dosage: SEE IMAGE
     Dates: start: 20060711
  4. SYNTHROID [Concomitant]
  5. GLUCOTROL [Concomitant]
  6. TIMOLOL MALEATE [Concomitant]
  7. VITAMIN E /01552201/ [Concomitant]
  8. COZAAR [Concomitant]
  9. LASIX /00032602/ [Concomitant]
  10. NASAREL /00456601/ [Concomitant]
  11. PRENATAL VITAMINS /01549301/ [Concomitant]
  12. ACTOS [Concomitant]
  13. ANTIVERT /00072802/ [Concomitant]
  14. PREVACID [Concomitant]
  15. FLAXSEED OIL [Concomitant]

REACTIONS (6)
  - BLOOD URINE PRESENT [None]
  - CATARACT [None]
  - DRUG INTERACTION [None]
  - EYE HAEMORRHAGE [None]
  - SKIN ATROPHY [None]
  - SKIN HAEMORRHAGE [None]
